FAERS Safety Report 9135376 (Version 1)
Quarter: 2013Q1

REPORT INFORMATION
  Report Type: Spontaneous
  Country: US (occurrence: US)
  Receive Date: 20130304
  Receipt Date: 20130304
  Transmission Date: 20140127
  Serious: No
  Sender: FDA-Public Use
  Company Number: US-ENDO PHARMACEUTICALS INC.-ENDC20110165

PATIENT
  Age: 49 Year
  Sex: Female

DRUGS (11)
  1. ENDOCET [Suspect]
     Indication: PAIN
     Dosage: UNKNOWN
     Route: 048
  2. PAXIL [Concomitant]
     Indication: BIPOLAR DISORDER
     Dosage: UNKNOWN
     Route: 048
     Dates: start: 2003
  3. DEXILANT [Concomitant]
     Indication: GASTROOESOPHAGEAL REFLUX DISEASE
     Dosage: UNKNOWN
     Route: 048
     Dates: start: 2010
  4. SINGULAIR [Concomitant]
     Indication: HYPERSENSITIVITY
     Dosage: UNKNOWN
     Route: 048
  5. ABILIFY [Concomitant]
     Indication: NEUROPATHY PERIPHERAL
     Dosage: UNKNOWN
     Route: 048
     Dates: start: 2010
  6. ATENOLOL [Concomitant]
     Indication: TACHYCARDIA
     Dosage: UNKNOWN
     Route: 048
  7. FOLIC ACID [Concomitant]
     Indication: GASTROOESOPHAGEAL REFLUX DISEASE
     Dosage: UNKNOWN
     Route: 048
  8. CRESTOR [Concomitant]
     Indication: HYPERLIPIDAEMIA
     Dosage: UNKNOWN
     Route: 048
     Dates: start: 2008
  9. DIPHENHYDRAMINE [Concomitant]
     Dosage: UNKNOWN
     Route: 048
     Dates: start: 2007
  10. ZYRTEC [Concomitant]
     Indication: HYPERSENSITIVITY
     Dosage: UNKNOWN
     Route: 048
  11. GABAPENTIN [Concomitant]
     Indication: NEUROPATHY PERIPHERAL
     Dosage: UNKNOWN
     Route: 048

REACTIONS (3)
  - Fall [Recovered/Resolved]
  - Overdose [Recovered/Resolved]
  - Dizziness [Recovered/Resolved]
